FAERS Safety Report 24157999 (Version 1)
Quarter: 2024Q3

REPORT INFORMATION
  Report Type: Report from Study
  Country: US (occurrence: None)
  Receive Date: 20240731
  Receipt Date: 20240731
  Transmission Date: 20241017
  Serious: Yes (Other)
  Sender: ASTRAZENECA
  Company Number: 2024A169022

PATIENT
  Sex: Male

DRUGS (1)
  1. CALQUENCE [Suspect]
     Active Substance: ACALABRUTINIB
     Indication: Chronic lymphocytic leukaemia
     Route: 048

REACTIONS (10)
  - Back disorder [Unknown]
  - Musculoskeletal discomfort [Unknown]
  - Arthralgia [Unknown]
  - Muscle spasms [Unknown]
  - Respiratory disorder [Unknown]
  - Productive cough [Unknown]
  - Hypersensitivity [Unknown]
  - Burning sensation [Unknown]
  - Skin cancer [Unknown]
  - Memory impairment [Unknown]
